FAERS Safety Report 9669321 (Version 1)
Quarter: 2013Q4

REPORT INFORMATION
  Report Type: Spontaneous
  Country: US (occurrence: US)
  Receive Date: 20131105
  Receipt Date: 20131105
  Transmission Date: 20140711
  Serious: Yes (Hospitalization)
  Sender: FDA-Public Use
  Company Number: US-JNJFOC-20131017345

PATIENT
  Sex: Female

DRUGS (2)
  1. INVOKANA [Suspect]
     Indication: TYPE 2 DIABETES MELLITUS
     Route: 048
     Dates: start: 2013, end: 2013
  2. LISINOPRIL [Concomitant]
     Route: 048

REACTIONS (2)
  - Cholecystectomy [Recovered/Resolved]
  - Dizziness [Recovered/Resolved]
